FAERS Safety Report 11124697 (Version 1)
Quarter: 2015Q2

REPORT INFORMATION
  Report Type: Spontaneous
  Country: US (occurrence: None)
  Receive Date: 20150519
  Receipt Date: 20150519
  Transmission Date: 20150821
  Serious: Yes (Other)
  Sender: FDA-Public Use
  Company Number: None

PATIENT
  Age: 42 Year
  Sex: Female
  Weight: 70.31 kg

DRUGS (1)
  1. VALACYCLOVIR [Suspect]
     Active Substance: VALACYCLOVIR HYDROCHLORIDE

REACTIONS (7)
  - Product taste abnormal [None]
  - Feeling abnormal [None]
  - Product substitution issue [None]
  - Vomiting [None]
  - Product difficult to swallow [None]
  - Product quality issue [None]
  - Product coating issue [None]

NARRATIVE: CASE EVENT DATE: 20150517
